FAERS Safety Report 9041944 (Version 1)
Quarter: 2013Q1

REPORT INFORMATION
  Report Type: Report from Study
  Country: US (occurrence: US)
  Receive Date: 20130129
  Receipt Date: 20130129
  Transmission Date: 20140127
  Serious: No
  Sender: FDA-Public Use
  Company Number: US-ABBOTT-12P-163-0896676-00

PATIENT
  Age: 76 Year
  Sex: Female

DRUGS (7)
  1. HUMIRA 40 MG/0.8 ML PEN [Suspect]
     Indication: RHEUMATOID ARTHRITIS
     Dates: start: 201106
  2. RECLAST [Concomitant]
     Indication: OSTEOPOROSIS
     Route: 042
  3. FOLIC ACID [Concomitant]
     Indication: PRODUCT USED FOR UNKNOWN INDICATION
  4. METHOTREXATE [Concomitant]
     Indication: PRODUCT USED FOR UNKNOWN INDICATION
  5. CALCIUM [Concomitant]
     Indication: OSTEOPOROSIS
  6. VITAMIN D3 [Concomitant]
     Indication: VITAMIN SUPPLEMENTATION
  7. MULTIPLE VITAMINS [Concomitant]
     Indication: VITAMIN SUPPLEMENTATION

REACTIONS (9)
  - Fear [Unknown]
  - Depressed mood [Unknown]
  - Nausea [Not Recovered/Not Resolved]
  - Fatigue [Unknown]
  - Blood thyroid stimulating hormone decreased [Unknown]
  - Rheumatoid arthritis [None]
  - Inflammation [Unknown]
  - Pain [Unknown]
  - Device malfunction [Unknown]
